FAERS Safety Report 25047326 (Version 2)
Quarter: 2025Q1

REPORT INFORMATION
  Report Type: Spontaneous
  Country: US (occurrence: US)
  Receive Date: 20250306
  Receipt Date: 20250317
  Transmission Date: 20250409
  Serious: Yes (Hospitalization)
  Sender: PFIZER
  Company Number: US-PFIZER INC-202500049240

PATIENT
  Age: 52 Year
  Sex: Male

DRUGS (2)
  1. MEKTOVI [Suspect]
     Active Substance: BINIMETINIB
  2. BRAFTOVI [Suspect]
     Active Substance: ENCORAFENIB

REACTIONS (3)
  - Neoplasm malignant [Unknown]
  - Diarrhoea [Unknown]
  - Dehydration [Unknown]
